FAERS Safety Report 5316379-2 (Version None)
Quarter: 2007Q2

REPORT INFORMATION
  Report Type: 
  Country: None (occurrence: None)
  Receive Date: 20070430
  Receipt Date: 20070412
  Transmission Date: 20071010
  Serious: Yes (Other)
  Sender: FDA-Public Use
  Company Number: 2007SP007842

PATIENT
  Age: 82 Year
  Sex: Female

DRUGS (8)
  1. CLARITIN-D 24 HOUR [Suspect]
     Indication: NASAL CONGESTION
     Dosage: 1 DF; QD; PO
     Route: 048
     Dates: start: 20070101, end: 20070101
  2. CLARITIN-D 24 HOUR [Suspect]
     Indication: RHINORRHOEA
     Dosage: 1 DF; QD; PO
     Route: 048
     Dates: start: 20070101, end: 20070101
  3. CLARITIN-D 24 HOUR [Suspect]
     Indication: SNEEZING
     Dosage: 1 DF; QD; PO
     Route: 048
     Dates: start: 20070101, end: 20070101
  4. CLARITIN-D 24 HOUR [Suspect]
     Indication: NASAL CONGESTION
     Dosage: 1 DF; QD; PO
     Route: 048
     Dates: end: 20070411
  5. CLARITIN-D 24 HOUR [Suspect]
     Indication: RHINORRHOEA
     Dosage: 1 DF; QD; PO
     Route: 048
     Dates: end: 20070411
  6. CLARITIN-D 24 HOUR [Suspect]
     Indication: SNEEZING
     Dosage: 1 DF; QD; PO
     Route: 048
     Dates: end: 20070411
  7. LIPITOR (CON.) [Concomitant]
  8. ACTENOL (CON.) [Concomitant]

REACTIONS (3)
  - DRY MOUTH [None]
  - HALLUCINATION, AUDITORY [None]
  - INSOMNIA [None]
